FAERS Safety Report 15334606 (Version 1)
Quarter: 2018Q3

REPORT INFORMATION
  Report Type: Spontaneous
  Country: US (occurrence: US)
  Receive Date: 20180830
  Receipt Date: 20180830
  Transmission Date: 20181010
  Serious: No
  Sender: FDA-Public Use
  Company Number: US-LEXICON PHARMACEUTICALS, INC-18-1606-00992

PATIENT
  Sex: Female

DRUGS (13)
  1. MULTIVITAMIN [Concomitant]
     Active Substance: VITAMINS
  2. PRAVASTATIN. [Concomitant]
     Active Substance: PRAVASTATIN
  3. LEVOTHYROXINE. [Concomitant]
     Active Substance: LEVOTHYROXINE
  4. AFINITOR [Concomitant]
     Active Substance: EVEROLIMUS
  5. VASERETIC [Concomitant]
     Active Substance: ENALAPRIL MALEATE\HYDROCHLOROTHIAZIDE
  6. CALCIUM [Concomitant]
     Active Substance: CALCIUM
  7. TOPAMAX [Concomitant]
     Active Substance: TOPIRAMATE
  8. DEXAMETHASON [Concomitant]
     Active Substance: DEXAMETHASONE
  9. HYDROCODONE [Concomitant]
     Active Substance: HYDROCODONE
  10. GABAPENTIN. [Concomitant]
     Active Substance: GABAPENTIN
  11. POTASSIUM [Concomitant]
     Active Substance: POTASSIUM
  12. TELOTRISTAT ETHYL [Suspect]
     Active Substance: TELOTRISTAT ETHYL
     Indication: CARCINOID SYNDROME
     Route: 048
  13. OCTREOTIDE. [Concomitant]
     Active Substance: OCTREOTIDE

REACTIONS (1)
  - Diarrhoea [Recovering/Resolving]
